FAERS Safety Report 5601580-0 (Version None)
Quarter: 2008Q1

REPORT INFORMATION
  Report Type: 
  Country: None (occurrence: None)
  Receive Date: 20080124
  Receipt Date: 20080118
  Transmission Date: 20080703
  Serious: Yes (Hospitalization)
  Sender: FDA-Public Use
  Company Number: JP-ASTRAZENECA-2008AP00476

PATIENT
  Age: 72 Year
  Sex: Male

DRUGS (7)
  1. CRESTOR [Suspect]
     Indication: HYPERCHOLESTEROLAEMIA
     Route: 048
     Dates: start: 20071115, end: 20071214
  2. ASPIRIN [Concomitant]
     Dosage: DOSE UNKNOWN
     Route: 048
  3. NORVASC [Concomitant]
     Dosage: DOSE UNKNOWN
     Route: 048
  4. SIGMART [Concomitant]
     Dosage: DOSE UNKNOWN
     Route: 048
  5. KERLONG [Concomitant]
     Dosage: DOSE UNKNOWN
     Route: 048
  6. GLYBURIDE [Concomitant]
     Dosage: DOSE UNKNOWN
     Route: 048
  7. BASEN [Concomitant]
     Dosage: DOSE UNKNOWN
     Route: 048

REACTIONS (4)
  - ALANINE AMINOTRANSFERASE INCREASED [None]
  - ASPARTATE AMINOTRANSFERASE INCREASED [None]
  - LIVER DISORDER [None]
  - TREATMENT NONCOMPLIANCE [None]
